FAERS Safety Report 20686476 (Version 1)
Quarter: 2022Q2

REPORT INFORMATION
  Report Type: Spontaneous
  Country: CN (occurrence: CN)
  Receive Date: 20220407
  Receipt Date: 20220407
  Transmission Date: 20220721
  Serious: Yes (Hospitalization)
  Sender: FDA-Public Use
  Company Number: CN-SCALL-2022-CN-000076

PATIENT
  Age: 46 Year
  Sex: Male
  Weight: 74 kg

DRUGS (5)
  1. RABEPRAZOLE SODIUM [Suspect]
     Active Substance: RABEPRAZOLE SODIUM
     Indication: Gastrointestinal disorder prophylaxis
     Dosage: 10 MG,1 D
     Route: 048
     Dates: start: 20220308, end: 20220310
  2. HERBALS [Suspect]
     Active Substance: HERBALS
     Dosage: 10 ML, TID
     Route: 048
     Dates: start: 20220309, end: 20220309
  3. DEXTROMETHORPHAN HYDROBROMIDE AND CHLORPHERNAMINE MALEATE, XV8T [Concomitant]
     Dosage: 1 TABLET, PO, TID
     Route: 048
     Dates: start: 20220309, end: 20220311
  4. CLOPIDOGREL BISULFATE [Concomitant]
     Active Substance: CLOPIDOGREL BISULFATE
     Dosage: 75 MG,1 D
     Route: 048
     Dates: start: 20220308
  5. ROSUVASTATIN CALCIUM [Concomitant]
     Active Substance: ROSUVASTATIN CALCIUM
     Dosage: 10 MG,1 D
     Route: 048
     Dates: start: 20220308

REACTIONS (2)
  - Rash erythematous [Recovered/Resolved]
  - Pruritus [Recovered/Resolved]

NARRATIVE: CASE EVENT DATE: 20220121
